FAERS Safety Report 10583348 (Version 1)
Quarter: 2014Q4

REPORT INFORMATION
  Report Type: Spontaneous
  Country: DE (occurrence: None)
  Receive Date: 20141112
  Receipt Date: 20141112
  Transmission Date: 20150529
  Serious: Yes (Life-Threatening)
  Sender: FDA-Public Use
  Company Number: FK201405043

PATIENT
  Age: 29 Year
  Sex: Female

DRUGS (1)
  1. CEFUROXIM FRESENIUS 1500 MG (CEFUROXIME SODIUM) (CEFUROXIME SODIUM) [Suspect]
     Active Substance: CEFUROXIME
     Indication: APPENDICITIS
     Dosage: 1.5 GM, INTRAVENOUS (NOT SPECIFIED)
     Route: 042

REACTIONS (2)
  - Hypersensitivity [None]
  - Respiratory failure [None]
